FAERS Safety Report 14780021 (Version 3)
Quarter: 2019Q2

REPORT INFORMATION
  Report Type: Spontaneous
  Country: US (occurrence: US)
  Receive Date: 20180419
  Receipt Date: 20190426
  Transmission Date: 20190711
  Serious: Yes (Other)
  Sender: FDA-Public Use
  Company Number: US-ASTRAZENECA-2018SE47298

PATIENT
  Sex: Female

DRUGS (16)
  1. GLIMEPIRIDE. [Concomitant]
     Active Substance: GLIMEPIRIDE
  2. VITAMIN E [Concomitant]
     Active Substance: .ALPHA.-TOCOPHEROL
  3. METOPROLOL. [Concomitant]
     Active Substance: METOPROLOL
  4. FUROSEMIDE. [Concomitant]
     Active Substance: FUROSEMIDE
  5. TRAMADOL. [Concomitant]
     Active Substance: TRAMADOL
  6. NEXIUM [Suspect]
     Active Substance: ESOMEPRAZOLE MAGNESIUM
     Indication: GASTROOESOPHAGEAL REFLUX DISEASE
     Route: 048
     Dates: start: 2016, end: 2017
  7. LISINOPRIL. [Concomitant]
     Active Substance: LISINOPRIL
  8. NEXIUM 24HR [Suspect]
     Active Substance: ESOMEPRAZOLE MAGNESIUM
     Route: 048
     Dates: start: 2016, end: 2017
  9. DILTIAZEM. [Concomitant]
     Active Substance: DILTIAZEM
  10. WARFARIN [Concomitant]
     Active Substance: WARFARIN
  11. ONDANSETRON [Concomitant]
     Active Substance: ONDANSETRON
  12. TIMOLOL. [Concomitant]
     Active Substance: TIMOLOL
  13. ALPRAZOLAM. [Concomitant]
     Active Substance: ALPRAZOLAM
  14. VITAMIN B12 [Concomitant]
     Active Substance: CYANOCOBALAMIN
  15. SPIRONOLACTONE. [Concomitant]
     Active Substance: SPIRONOLACTONE
  16. MICONAZOLE. [Concomitant]
     Active Substance: MICONAZOLE

REACTIONS (5)
  - Nephrogenic anaemia [Unknown]
  - End stage renal disease [Not Recovered/Not Resolved]
  - Chronic kidney disease [Unknown]
  - Tubulointerstitial nephritis [Unknown]
  - Acute kidney injury [Unknown]
